FAERS Safety Report 8067622 (Version 2)
Quarter: 2012Q4

REPORT INFORMATION
  Report Type: Report from Study
  Country: DE (occurrence: DE)
  Receive Date: 20110803
  Receipt Date: 20121010
  Transmission Date: 20130627
  Serious: Yes (Hospitalization)
  Sender: FDA-Public Use
  Company Number: PHHO2011DE12531

PATIENT
  Age: 48 Year
  Sex: Male
  Weight: 95 kg

DRUGS (11)
  1. BLINDED ALISKIREN [Suspect]
     Indication: CARDIAC FAILURE
     Dosage: Code not broken
     Route: 048
     Dates: start: 20100122
  2. BLINDED ENALAPRIL [Suspect]
     Indication: CARDIAC FAILURE
     Dosage: Code not broken
     Route: 048
     Dates: start: 20100122
  3. BLINDED NO TREATMENT RECEIVED [Suspect]
     Indication: CARDIAC FAILURE
     Dosage: Code not broken
     Route: 048
     Dates: start: 20100122
  4. COUMADIN [Concomitant]
     Indication: CORONARY ARTERY DISEASE
     Dosage: 5 mg, PRN (2.5-5 mg PRN)
     Dates: start: 200612, end: 201107
  5. ASS [Concomitant]
     Indication: CORONARY ARTERY DISEASE
     Dosage: 100 mg, UNK
     Dates: start: 200612
  6. FUROSEMIDE [Concomitant]
     Indication: CARDIAC FAILURE
     Dosage: 80 mg, UNK
     Dates: start: 200702
  7. AMIODARON [Concomitant]
     Indication: CORONARY ARTERY DISEASE
     Dosage: 200 mg, UNK
     Dates: start: 200702
  8. OMEPRAZOL [Concomitant]
     Indication: GASTRITIS
     Dosage: 20 mg, UNK
     Dates: start: 200702
  9. BISOPROLOL [Concomitant]
     Indication: HYPERTENSION
     Dosage: 2.5 mg, UNK
     Dates: start: 200702
  10. NOVAMINSULFON [Concomitant]
     Indication: ARTHRITIS
     Dosage: 20 drp, PRN
     Dates: start: 20090420
  11. SIMVASTATIN [Concomitant]
     Indication: HYPERCHOLESTEROLAEMIA
     Dosage: 20 mg, UNK
     Dates: start: 200612

REACTIONS (2)
  - Arrhythmia [Recovered/Resolved]
  - Osteoarthritis [Not Recovered/Not Resolved]
